FAERS Safety Report 5771343-4 (Version None)
Quarter: 2008Q2

REPORT INFORMATION
  Report Type: 
  Country: None (occurrence: None)
  Receive Date: 20080613
  Receipt Date: 20080610
  Transmission Date: 20081010
  Serious: Yes (Death, Other)
  Sender: FDA-Public Use
  Company Number: US-JNJFOC-20070606638

PATIENT
  Sex: Female
  Weight: 53.75 kg

DRUGS (12)
  1. DOXIL [Suspect]
     Route: 042
  2. DOXIL [Suspect]
     Route: 042
  3. DOXIL [Suspect]
     Route: 042
  4. DOXIL [Suspect]
     Route: 042
  5. DOXIL [Suspect]
     Indication: OVARIAN CANCER
     Route: 042
  6. PEGFILGRASTIM [Concomitant]
     Route: 065
  7. PEGFILGRASTIM [Concomitant]
     Indication: NEUTROPENIA
     Route: 065
  8. NEUPOGEN [Concomitant]
     Indication: NEUTROPENIA
     Route: 065
  9. DARBEPOETIN [Concomitant]
     Route: 065
  10. DARBEPOETIN [Concomitant]
     Route: 065
  11. DARBEPOETIN [Concomitant]
     Route: 065
  12. DARBEPOETIN [Concomitant]
     Indication: ANAEMIA
     Route: 065

REACTIONS (3)
  - BLISTER [None]
  - OEDEMA PERIPHERAL [None]
  - OVARIAN CANCER [None]
